FAERS Safety Report 8500155-3 (Version None)
Quarter: 2012Q3

REPORT INFORMATION
  Report Type: 
  Country: None (occurrence: None)
  Receive Date: 20120710
  Receipt Date: 20120705
  Transmission Date: 20120928
  Serious: Yes (Other)
  Sender: FDA-Public Use
  Company Number: JP-PFIZER INC-2011179654

PATIENT
  Age: 67 Year
  Sex: Male

DRUGS (1)
  1. ESTRACYT [Suspect]
     Route: 048

REACTIONS (1)
  - PULMONARY EMBOLISM [None]
